FAERS Safety Report 5493987-X (Version None)
Quarter: 2007Q4

REPORT INFORMATION
  Report Type: 
  Country: None (occurrence: None)
  Receive Date: 20071023
  Receipt Date: 20071011
  Transmission Date: 20080405
  Serious: Yes (Congenital Anomaly)
  Sender: FDA-Public Use
  Company Number: FR-PFIZER INC-2007085956

PATIENT

DRUGS (1)
  1. MISOPROSTOL [Suspect]
     Route: 064
     Dates: start: 20070612, end: 20070627

REACTIONS (5)
  - ANOXIA [None]
  - DRUG EXPOSURE DURING PREGNANCY [None]
  - FOETAL GROWTH RETARDATION [None]
  - KIDNEY MALFORMATION [None]
  - LIMB MALFORMATION [None]
